FAERS Safety Report 7642919-4 (Version None)
Quarter: 2011Q3

REPORT INFORMATION
  Report Type: 
  Country: None (occurrence: None)
  Receive Date: 20110728
  Receipt Date: 20110720
  Transmission Date: 20111222
  Serious: Yes (Other)
  Sender: FDA-Public Use
  Company Number: PHHY2010TW31183

PATIENT
  Age: 72 Year
  Sex: Female

DRUGS (1)
  1. ZOLEDRONOC ACID [Suspect]
     Indication: OSTEOPOROSIS POSTMENOPAUSAL
     Dosage: 5 MG/100ML ONCE A YEAR
     Route: 042
     Dates: start: 20100426

REACTIONS (5)
  - PYREXIA [None]
  - PLATELET COUNT DECREASED [None]
  - DIZZINESS [None]
  - VOMITING [None]
  - HYPOTENSION [None]
